FAERS Safety Report 4557124-8 (Version None)
Quarter: 2005Q1

REPORT INFORMATION
  Report Type: 
  Country: None (occurrence: None)
  Receive Date: 20050103
  Receipt Date: 20040915
  Transmission Date: 20050727
  Serious: Yes (Other)
  Sender: FDA-Public Use
  Company Number: 2004UW19317

PATIENT
  Age: 58 Year
  Sex: Female
  Weight: 90.7194 kg

DRUGS (5)
  1. CRESTOR [Suspect]
     Indication: BLOOD CHOLESTEROL INCREASED
     Dosage: 20 MG PO
     Route: 048
     Dates: start: 20040601
  2. PLAVIX [Concomitant]
  3. ASPIRIN [Concomitant]
  4. NADOLOL [Concomitant]
  5. ZETIA [Concomitant]

REACTIONS (1)
  - DYSGEUSIA [None]
